FAERS Safety Report 24524789 (Version 1)
Quarter: 2024Q4

REPORT INFORMATION
  Report Type: Report from Study
  Country: US (occurrence: US)
  Receive Date: 20241019
  Receipt Date: 20241019
  Transmission Date: 20250114
  Serious: Yes (Hospitalization)
  Sender: ABBVIE
  Company Number: US-ABBVIE-5787365

PATIENT
  Sex: Female

DRUGS (5)
  1. SKYRIZI [Suspect]
     Active Substance: RISANKIZUMAB-RZAA
     Indication: Psoriasis
     Dosage: LAST ADMIN DATE-2023
     Route: 058
     Dates: start: 20231005
  2. SKYRIZI [Suspect]
     Active Substance: RISANKIZUMAB-RZAA
     Route: 058
     Dates: start: 20231201
  3. SKYRIZI [Suspect]
     Active Substance: RISANKIZUMAB-RZAA
     Dosage: LAST ADMIN DATE-2023
     Route: 058
     Dates: start: 20231007
  4. SKYRIZI [Suspect]
     Active Substance: RISANKIZUMAB-RZAA
     Route: 058
     Dates: end: 202405
  5. SKYRIZI [Suspect]
     Active Substance: RISANKIZUMAB-RZAA
     Route: 058
     Dates: start: 20230901

REACTIONS (11)
  - Pneumonia [Not Recovered/Not Resolved]
  - Lung disorder [Unknown]
  - Eye disorder [Unknown]
  - Psoriasis [Unknown]
  - Illness [Unknown]
  - Pain [Unknown]
  - Visual impairment [Unknown]
  - Unevaluable event [Unknown]
  - Traumatic lung injury [Unknown]
  - Feeling abnormal [Unknown]
  - Dry skin [Unknown]

NARRATIVE: CASE EVENT DATE: 20240101
